FAERS Safety Report 9284058 (Version 2)
Quarter: 2013Q2

REPORT INFORMATION
  Report Type: Spontaneous
  Country: FR (occurrence: None)
  Receive Date: 20130502
  Receipt Date: 20130624
  Transmission Date: 20140414
  Serious: Yes (Life-Threatening)
  Sender: FDA-Public Use
  Company Number: SYM-2013-03324

PATIENT
  Age: 38 Year
  Sex: Female

DRUGS (13)
  1. PROSTIGMIN [Suspect]
     Indication: MAINTENANCE OF ANAESTHESIA
     Route: 042
     Dates: start: 20111123, end: 20111123
  2. ATROPINE LAVOISIER [Suspect]
     Indication: PRODUCT USED FOR UNKNOWN INDICATION
     Route: 042
     Dates: start: 20111123, end: 20111123
  3. NAROPEINE [Suspect]
     Indication: ANAESTHESIA
     Dates: start: 20111123, end: 20111123
  4. DROLEPTAN [Suspect]
     Indication: PROPHYLAXIS
     Route: 042
     Dates: start: 20111123, end: 20111123
  5. SPASFON [Suspect]
     Indication: GASTROINTESTINAL DISORDER
     Route: 042
     Dates: start: 20111123, end: 20111123
  6. SUPRANE [Suspect]
     Indication: ANAESTHESIA
     Dosage: RESPIRATORY
     Route: 055
     Dates: start: 20111123, end: 20111123
  7. PROPOFOL LIPURO [Suspect]
     Indication: INDUCTION OF ANAESTHESIA
     Route: 042
     Dates: start: 20111123, end: 20111123
  8. SUFENTANIL [Suspect]
     Indication: INDUCTION OF ANAESTHESIA
     Route: 042
     Dates: start: 20111123
  9. NIMBEX [Suspect]
     Indication: ANAESTHESIA
     Route: 042
     Dates: start: 20111123, end: 20111123
  10. ONDANSETRON [Suspect]
     Indication: PROPHYLAXIS
     Dosage: 1 IN 1 TOTAL
     Route: 042
     Dates: start: 20111123, end: 20111123
  11. CEFAZOLINE [Suspect]
     Indication: ANTIBIOTIC PROPHYLAXIS
     Dosage: 1 IN 1 TOTAL
     Route: 042
     Dates: start: 20111123, end: 20111123
  12. PERFALGAN [Suspect]
     Indication: PAIN
     Route: 042
     Dates: start: 20111123, end: 20111123
  13. PROFENID [Suspect]
     Indication: PAIN
     Route: 042
     Dates: start: 20111123, end: 20111123

REACTIONS (5)
  - Circulatory collapse [None]
  - Dyspnoea [None]
  - Myocardial stunning [None]
  - Hypoxia [None]
  - Interstitial lung disease [None]
